FAERS Safety Report 5238401-4 (Version None)
Quarter: 2007Q1

REPORT INFORMATION
  Report Type: 
  Country: None (occurrence: None)
  Receive Date: 20070215
  Receipt Date: 20070119
  Transmission Date: 20070707
  Serious: Yes (Life-Threatening)
  Sender: FDA-Public Use
  Company Number: FR-ROCHE-479202

PATIENT
  Age: 73 Year
  Sex: Male
  Weight: 66 kg

DRUGS (8)
  1. XELODA [Suspect]
     Route: 048
     Dates: start: 20061128, end: 20061206
  2. INSULATARD [Concomitant]
     Indication: DIABETES MELLITUS
     Dosage: DOSING: BETWEEN 14 AND 16 IU IN THE MORNING AND 8 IU IN THE EVENING.
  3. KARDEGIC [Concomitant]
     Indication: HYPERTENSION
     Route: 048
     Dates: end: 20061209
  4. UN ALPHA [Concomitant]
     Route: 048
  5. ACTRAPID [Concomitant]
     Indication: DIABETES MELLITUS
  6. CORDARONE [Concomitant]
     Indication: ATRIAL FLUTTER
     Route: 048
  7. MOPRAL [Concomitant]
  8. CREON [Concomitant]

REACTIONS (3)
  - BONE MARROW FAILURE [None]
  - SEPSIS [None]
  - SHOCK [None]
